FAERS Safety Report 21652903 (Version 1)
Quarter: 2022Q4

REPORT INFORMATION
  Report Type: Report from Study
  Country: US (occurrence: US)
  Receive Date: 20221128
  Receipt Date: 20221128
  Transmission Date: 20230113
  Serious: Yes (Other)
  Sender: FDA-Public Use
  Company Number: US-MYLANLABS-2022M1131813

PATIENT
  Age: 6 Decade
  Sex: Female

DRUGS (7)
  1. OXALIPLATIN [Suspect]
     Active Substance: OXALIPLATIN
     Indication: Adenocarcinoma pancreas
     Dosage: UNK
     Route: 065
  2. GEMCITABINE [Suspect]
     Active Substance: GEMCITABINE
     Indication: Adenocarcinoma pancreas
     Dosage: UNK
     Route: 065
  3. PACLITAXEL [Suspect]
     Active Substance: PACLITAXEL
     Indication: Adenocarcinoma pancreas
     Dosage: UNK
     Route: 065
  4. FLUOROURACIL [Suspect]
     Active Substance: FLUOROURACIL
     Indication: Adenocarcinoma pancreas
     Dosage: UNK
     Route: 065
  5. LEUCOVORIN [Suspect]
     Active Substance: LEUCOVORIN
     Indication: Adenocarcinoma pancreas
     Dosage: UNK
     Route: 065
  6. IRINOTECAN [Suspect]
     Active Substance: IRINOTECAN
     Indication: Adenocarcinoma pancreas
     Dosage: UNK
     Route: 065
  7. OLAPARIB [Suspect]
     Active Substance: OLAPARIB
     Indication: Adenocarcinoma pancreas
     Dosage: UNK
     Route: 065

REACTIONS (1)
  - Drug ineffective [Unknown]
